FAERS Safety Report 9431879 (Version 1)
Quarter: 2013Q3

REPORT INFORMATION
  Report Type: Spontaneous
  Country: GB (occurrence: GB)
  Receive Date: 20130731
  Receipt Date: 20130731
  Transmission Date: 20140515
  Serious: Yes (Other)
  Sender: FDA-Public Use
  Company Number: PHFR2013GB004285

PATIENT
  Age: 31 Year
  Sex: Male
  Weight: 55 kg

DRUGS (9)
  1. TOBRAMYCIN [Suspect]
     Indication: TREATMENT FAILURE
     Dosage: 112 MG, BID
     Dates: start: 20130703, end: 20130708
  2. CREON [Concomitant]
     Dosage: UNK
  3. LEVEMIR [Concomitant]
     Dosage: UNK
  4. DORNASE ALFA [Concomitant]
     Dosage: UNK
  5. OMEPRAZOLE SODIUM [Concomitant]
     Dosage: UNK
  6. NOVORAPID [Concomitant]
     Dosage: UNK
  7. SERETIDE [Concomitant]
     Dosage: UNK
  8. SALBUTAMOL [Concomitant]
     Dosage: UNK
  9. URSODEOXYCHOLIC ACID [Concomitant]
     Dosage: UNK

REACTIONS (3)
  - Ototoxicity [Unknown]
  - Tinnitus [Recovering/Resolving]
  - Chest discomfort [Recovering/Resolving]
